FAERS Safety Report 25090581 (Version 1)
Quarter: 2025Q1

REPORT INFORMATION
  Report Type: Spontaneous
  Country: CN (occurrence: CN)
  Receive Date: 20250318
  Receipt Date: 20250318
  Transmission Date: 20250409
  Serious: Yes (Other)
  Sender: BAYER HEALTHCARE PHARMACEUTICALS INC.
  Company Number: CN-BAYER-2025A036757

PATIENT
  Age: 55 Year
  Sex: Female
  Weight: 60 kg

DRUGS (2)
  1. ULTRAVIST [Suspect]
     Active Substance: IOPROMIDE
     Indication: Computerised tomogram
     Route: 042
     Dates: start: 20250221, end: 20250221
  2. ULTRAVIST [Suspect]
     Active Substance: IOPROMIDE
     Indication: Pancreatitis acute

REACTIONS (7)
  - Anaphylactic shock [Recovering/Resolving]
  - Amaurosis fugax [None]
  - Blood pressure decreased [Recovered/Resolved]
  - Pruritus [Recovering/Resolving]
  - Heart rate decreased [Recovered/Resolved]
  - Respiratory rate increased [None]
  - Depressed mood [Recovering/Resolving]

NARRATIVE: CASE EVENT DATE: 20250221
